FAERS Safety Report 4296119-9 (Version None)
Quarter: 2004Q1

REPORT INFORMATION
  Report Type: 
  Country: None (occurrence: None)
  Receive Date: 20040217
  Receipt Date: 20030819
  Transmission Date: 20041129
  Serious: No
  Sender: FDA-Public Use
  Company Number: US-GLAXOSMITHKLINE-A0422666A

PATIENT
  Age: 52 Year
  Sex: Male

DRUGS (10)
  1. LAMICTAL [Suspect]
     Indication: BIPOLAR DISORDER
     Dosage: 200MG VARIABLE DOSE
     Route: 048
     Dates: start: 20010821
  2. TESTOSTERONE INJECTION [Concomitant]
  3. CELEBREX [Concomitant]
  4. TRAZODONE HCL [Concomitant]
  5. LEXAPRO [Concomitant]
  6. TIAZAC [Concomitant]
  7. ULTRAM [Concomitant]
  8. VIAGRA [Concomitant]
  9. XANAX [Concomitant]
  10. UNIPHYL [Concomitant]

REACTIONS (4)
  - BALANCE DISORDER [None]
  - MYALGIA [None]
  - SPEECH DISORDER [None]
  - TREMOR [None]
